FAERS Safety Report 9110470 (Version 1)
Quarter: 2013Q1

REPORT INFORMATION
  Report Type: Spontaneous
  Country: FR (occurrence: IT)
  Receive Date: 20130223
  Receipt Date: 20130223
  Transmission Date: 20140127
  Serious: Yes (Death, Other)
  Sender: FDA-Public Use
  Company Number: FR-OTSUKA-US-2013-10314

PATIENT
  Age: 30 Year
  Sex: 0

DRUGS (12)
  1. BUSULFEX [Suspect]
     Indication: ALLOGENIC BONE MARROW TRANSPLANTATION THERAPY
     Dosage: 3.2 MG/KG, UNK
     Route: 042
     Dates: start: 20110604, end: 20110606
  2. THIOTEPA [Suspect]
     Indication: ALLOGENIC BONE MARROW TRANSPLANTATION THERAPY
     Dosage: 5 MG/KG, UNK
     Route: 065
     Dates: start: 20110602, end: 20110603
  3. FLUDARA [Suspect]
     Indication: ALLOGENIC BONE MARROW TRANSPLANTATION THERAPY
     Dosage: 50 MG/M2, UNK
     Route: 065
     Dates: start: 20110604
  4. CYCLOPHOSPHAMIDE [Suspect]
     Indication: PROPHYLAXIS AGAINST GRAFT VERSUS HOST DISEASE
     Dosage: 50 MG/KG, UNKNOWN
     Route: 065
     Dates: start: 20110611, end: 20110613
  5. CICLOSPORIN [Concomitant]
     Dosage: 1MG/KG,GIVEN AS A CONTINUOUS IV INFUSION FROM DAY0 TO DAY+20 ADJUSTING FOR BLOOD LEVEL (200-400NG/ML
     Dates: start: 20110608
  6. MYCOPHENOLATE MOFETIL [Concomitant]
     Dosage: 15 MG/KG, Q12HR, FROM DAY +1 TODAY +28
     Dates: start: 20110609
  7. G-CSF [Concomitant]
     Dosage: 6 MG MILLIGRAM(S), 1 VIAL S.C. (6 MG) WAS GIVEN ON DAY +5
     Dates: start: 20110613
  8. MESNA [Concomitant]
     Dosage: 80% OF THE CYCLOPHOSPHAMIDE DOSE
     Dates: start: 20110611, end: 20110615
  9. ACYCLOVIR [Concomitant]
  10. PHENYTOIN [Concomitant]
     Dosage: 300 MG MILLIGRAM(S), QD
     Route: 048
     Dates: start: 20110604, end: 20110606
  11. LEVOFLOXACIN [Concomitant]
  12. FLUCONAZOLE [Concomitant]

REACTIONS (3)
  - Pneumonitis [Fatal]
  - Renal failure [Unknown]
  - Venoocclusive liver disease [Recovered/Resolved]
